FAERS Safety Report 19878948 (Version 1)
Quarter: 2021Q3

REPORT INFORMATION
  Report Type: Spontaneous
  Country: RU (occurrence: RU)
  Receive Date: 20210924
  Receipt Date: 20210924
  Transmission Date: 20211014
  Serious: Yes (Other)
  Sender: FDA-Public Use
  Company Number: RU-ABBVIE-21K-251-4090770-00

PATIENT
  Age: 5 Year
  Sex: Female

DRUGS (1)
  1. DEPAKINE CHRONOSPHERE [Suspect]
     Active Substance: VALPROIC ACID
     Indication: PRODUCT USED FOR UNKNOWN INDICATION
     Route: 065
     Dates: start: 201502

REACTIONS (4)
  - Growth retardation [Unknown]
  - Hypotonia [Unknown]
  - Fatigue [Unknown]
  - Memory impairment [Unknown]
